FAERS Safety Report 5422701-9 (Version None)
Quarter: 2007Q3

REPORT INFORMATION
  Report Type: 
  Country: None (occurrence: None)
  Receive Date: 20070730
  Receipt Date: 20060830
  Transmission Date: 20080115
  Serious: Yes (Hospitalization)
  Sender: FDA-Public Use
  Company Number: 200614513BWH

PATIENT
  Age: 54 Year
  Sex: Female

DRUGS (1)
  1. AVELOX [Suspect]
     Indication: SINUSITIS
     Dosage: ONCE, ORAL
     Route: 048
     Dates: start: 20060212

REACTIONS (1)
  - ANAPHYLACTIC REACTION [None]
